FAERS Safety Report 15160572 (Version 2)
Quarter: 2018Q4

REPORT INFORMATION
  Report Type: Spontaneous
  Country: GB (occurrence: GB)
  Receive Date: 20180718
  Receipt Date: 20181003
  Transmission Date: 20190204
  Serious: Yes (Other)
  Sender: FDA-Public Use
  Company Number: GB-MYLANLABS-2018M1050576

PATIENT
  Age: 43 Year
  Sex: Male
  Weight: 69.85 kg

DRUGS (1)
  1. CITALOPRAM [Suspect]
     Active Substance: CITALOPRAM HYDROBROMIDE
     Indication: PRODUCT USED FOR UNKNOWN INDICATION
     Dosage: 10 MG, UNK
     Route: 048
     Dates: start: 19970510

REACTIONS (12)
  - Myalgia [Unknown]
  - Depression suicidal [Unknown]
  - Arthralgia [Unknown]
  - Impaired healing [Unknown]
  - Withdrawal syndrome [Unknown]
  - Amnesia [Not Recovered/Not Resolved]
  - Oral disorder [Unknown]
  - Drug effect decreased [Unknown]
  - Urge incontinence [Not Recovered/Not Resolved]
  - Insomnia [Unknown]
  - Urticaria [Unknown]
  - Immune system disorder [Unknown]

NARRATIVE: CASE EVENT DATE: 20040306
